FAERS Safety Report 5207492-9 (Version None)
Quarter: 2006Q4

REPORT INFORMATION
  Report Type: 
  Country: None (occurrence: None)
  Receive Date: 20061030
  Receipt Date: 20060726
  Transmission Date: 20070319
  Serious: No
  Sender: FDA-Public Use
  Company Number: 2006CT000532

PATIENT
  Age: 71 Year
  Sex: Female
  Weight: 61.6892 kg

DRUGS (16)
  1. VENTAVIS [Suspect]
     Indication: PULMONARY HYPERTENSION
     Dosage: 5 UG; 6TO9X/DAY; INH
     Route: 055
     Dates: start: 20051206
  2. AGRYLIN [Suspect]
     Indication: DRUG USE FOR UNKNOWN INDICATION
     Dosage: 0.5 MG; QD; PO
     Route: 048
  3. WARFARIN SODIUM [Suspect]
     Indication: DRUG USE FOR UNKNOWN INDICATION
     Dosage: 4 MG; QD; PO
     Route: 048
  4. SPIRONOLACTONE [Concomitant]
  5. PRILOSEC [Concomitant]
  6. TYLENOL [Concomitant]
  7. TRACLEER [Concomitant]
  8. LACTULOSE [Concomitant]
  9. DIGOXIN [Concomitant]
  10. AMLODIPINE [Concomitant]
  11. FUROSEMIDE [Concomitant]
  12. AMBIEN [Concomitant]
  13. DOXYCYCLINE [Concomitant]
  14. HISTINEX HC [Concomitant]
  15. GLIPIZIDE [Concomitant]
  16. OCEAN [Concomitant]

REACTIONS (3)
  - EPISTAXIS [None]
  - HAEMOPTYSIS [None]
  - PARAESTHESIA ORAL [None]
